FAERS Safety Report 7151351-1 (Version None)
Quarter: 2010Q4

REPORT INFORMATION
  Report Type: 
  Country: None (occurrence: None)
  Receive Date: 20101210
  Receipt Date: 20101124
  Transmission Date: 20110411
  Serious: Yes (Death, Life-Threatening, Hospitalization, Other)
  Sender: FDA-Public Use
  Company Number: LY-BAYER-2010-002812

PATIENT
  Age: 81 Year
  Sex: Male
  Weight: 58 kg

DRUGS (3)
  1. NEXAVAR [Suspect]
     Dosage: 200 MG, BID
     Route: 048
     Dates: start: 20100801, end: 20101017
  2. ATENOLOL [Concomitant]
     Indication: HYPERTENSION
     Dosage: 50 MG, QD
     Route: 048
     Dates: start: 20040101, end: 20101115
  3. TIMOLOL [Concomitant]
     Indication: GLAUCOMA
     Dosage: UNK
     Dates: start: 20050101, end: 20101115

REACTIONS (3)
  - ASCITES [None]
  - HEPATIC CIRRHOSIS [None]
  - PERITONITIS BACTERIAL [None]
